FAERS Safety Report 4499110-2 (Version None)
Quarter: 2004Q4

REPORT INFORMATION
  Report Type: 
  Country: None (occurrence: None)
  Receive Date: 20041111
  Receipt Date: 20041105
  Transmission Date: 20050328
  Serious: Yes (Life-Threatening, Disabling)
  Sender: FDA-Public Use
  Company Number: US-MERCK-0411USA00958

PATIENT
  Age: 58 Year
  Sex: Female

DRUGS (5)
  1. VIOXX [Suspect]
     Indication: ARTHRITIS
     Route: 048
     Dates: start: 19990101, end: 20040901
  2. SYNTHROID [Concomitant]
     Route: 065
  3. NORVASC [Concomitant]
     Route: 065
  4. TOPROL-XL [Concomitant]
     Route: 065
  5. PLAQUENIL [Concomitant]
     Route: 065

REACTIONS (2)
  - ARRHYTHMIA [None]
  - PALPITATIONS [None]
